FAERS Safety Report 21522017 (Version 1)
Quarter: 2022Q4

REPORT INFORMATION
  Report Type: Spontaneous
  Country: US (occurrence: None)
  Receive Date: 20221027
  Receipt Date: 20221027
  Transmission Date: 20230113
  Serious: Yes (Hospitalization)
  Sender: FDA-Public Use
  Company Number: None

PATIENT

DRUGS (4)
  1. ACETAMINOPHEN AND CODEINE [Suspect]
     Active Substance: ACETAMINOPHEN\CODEINE PHOSPHATE
  2. ALPRAZOLAM [Suspect]
     Active Substance: ALPRAZOLAM
  3. GABAPENTIN [Suspect]
     Active Substance: GABAPENTIN
  4. TRAMADOL [Suspect]
     Active Substance: TRAMADOL

REACTIONS (3)
  - Loss of consciousness [None]
  - Head injury [None]
  - Alcohol abuse [None]

NARRATIVE: CASE EVENT DATE: 20210716
